FAERS Safety Report 17860980 (Version 1)
Quarter: 2020Q2

REPORT INFORMATION
  Report Type: Report from Study
  Country: TW (occurrence: TW)
  Receive Date: 20200604
  Receipt Date: 20200604
  Transmission Date: 20200714
  Serious: Yes (Other)
  Sender: FDA-Public Use
  Company Number: TW-PFIZER INC-2020216604

PATIENT
  Age: 48 Year
  Sex: Female

DRUGS (5)
  1. METHYLPREDNISOLONE SODIUM SUCCINATE. [Suspect]
     Active Substance: METHYLPREDNISOLONE SODIUM SUCCINATE
     Indication: SEVERE ACUTE RESPIRATORY SYNDROME
     Dosage: 500 MG 2X/DAY, FOR 3 DAYS
     Route: 042
  2. MIDAZOLAM. [Concomitant]
     Active Substance: MIDAZOLAM
     Indication: SEDATIVE THERAPY
     Dosage: UNK
  3. RIBAVIRIN. [Concomitant]
     Active Substance: RIBAVIRIN
     Indication: SEVERE ACUTE RESPIRATORY SYNDROME
     Dosage: UNK
  4. ATRACURIUM [Suspect]
     Active Substance: ATRACURIUM
     Indication: PARALYSIS
     Dosage: UNK
  5. IMMUNOGLOBULIN HUMAN NORMAL [Concomitant]
     Active Substance: HUMAN IMMUNOGLOBULIN G
     Indication: SEVERE ACUTE RESPIRATORY SYNDROME
     Dosage: UNK
     Route: 042

REACTIONS (1)
  - Rhabdomyolysis [Recovered/Resolved]
